FAERS Safety Report 22855689 (Version 3)
Quarter: 2023Q4

REPORT INFORMATION
  Report Type: Spontaneous
  Country: US (occurrence: US)
  Receive Date: 20230823
  Receipt Date: 20231002
  Transmission Date: 20240110
  Serious: Yes (Other)
  Sender: FDA-Public Use
  Company Number: US-SA-SAC20230818000853

PATIENT
  Age: 69 Year
  Sex: Male

DRUGS (3)
  1. DUPIXENT [Suspect]
     Active Substance: DUPILUMAB
     Indication: Dermatitis atopic
     Dosage: 300 MG, QOW
     Route: 058
     Dates: start: 20211124
  2. SPIRONOLACTONE [Suspect]
     Active Substance: SPIRONOLACTONE
     Indication: Hypertension
     Dosage: 25 MG
  3. SPIRONOLACTONE [Suspect]
     Active Substance: SPIRONOLACTONE
     Dosage: 12.5 MG

REACTIONS (5)
  - Precancerous condition [Unknown]
  - Hypotension [Unknown]
  - Dizziness [Unknown]
  - Dermatitis atopic [Unknown]
  - Rash [Unknown]

NARRATIVE: CASE EVENT DATE: 20230801
